FAERS Safety Report 4636306-0 (Version None)
Quarter: 2005Q2

REPORT INFORMATION
  Report Type: 
  Country: None (occurrence: None)
  Receive Date: 20050415
  Receipt Date: 20040813
  Transmission Date: 20051028
  Serious: No
  Sender: FDA-Public Use
  Company Number: US-BRISTOL-MYERS SQUIBB COMPANY-12671137

PATIENT
  Age: 60 Year
  Sex: Male

DRUGS (6)
  1. CARBOPLATIN [Suspect]
     Indication: LUNG NEOPLASM MALIGNANT
     Dosage: CYCLE 1; DOSE 7 (12-AUG-2004) THERAPY DATES: 24-JUN-2004 TO 12-AUG-2004
     Route: 042
     Dates: start: 20040812, end: 20040812
  2. PACLITAXEL [Concomitant]
     Dosage: CYCLE 1; DOSE 7 (12-AUG-2004) THERAPY DATES: 24-JUN-2004 TO 12-AUG-2004
     Route: 042
     Dates: start: 20040624, end: 20040812
  3. GRANISETRON [Concomitant]
     Indication: PREMEDICATION
     Route: 042
     Dates: start: 20040812, end: 20040812
  4. DEXAMETHASONE [Concomitant]
     Indication: PREMEDICATION
     Route: 042
     Dates: start: 20040812, end: 20040812
  5. DIPHENHYDRAMINE HCL [Concomitant]
     Indication: PREMEDICATION
     Route: 042
     Dates: start: 20040812, end: 20040812
  6. FAMOTIDINE [Concomitant]
     Indication: PREMEDICATION
     Route: 042
     Dates: start: 20040812, end: 20040812

REACTIONS (2)
  - ORAL PRURITUS [None]
  - PRURITUS [None]
